FAERS Safety Report 17975695 (Version 1)
Quarter: 2020Q3

REPORT INFORMATION
  Report Type: Spontaneous
  Country: US (occurrence: US)
  Receive Date: 20200702
  Receipt Date: 20200702
  Transmission Date: 20201103
  Serious: Yes (Hospitalization, Other)
  Sender: FDA-Public Use
  Company Number: US-NAPPMUNDI-USA-2020-0152295

PATIENT
  Sex: Male

DRUGS (11)
  1. MORPHINE SULFATE ORAL SOLUTION [Suspect]
     Active Substance: MORPHINE SULFATE
     Indication: PAIN
  2. LORTAB [Suspect]
     Active Substance: ACETAMINOPHEN\HYDROCODONE BITARTRATE
     Indication: PAIN
     Dosage: 10/650 MG
     Route: 048
     Dates: start: 1985, end: 1995
  3. MORPHINE SULFATE ORAL SOLUTION [Suspect]
     Active Substance: MORPHINE SULFATE
     Indication: PAIN
     Dosage: 700 ML, UNK
     Route: 048
  4. FENTANYL. [Suspect]
     Active Substance: FENTANYL
     Indication: PAIN
     Dosage: 2 PATCH, DAILY
     Route: 062
  5. VICODIN [Suspect]
     Active Substance: ACETAMINOPHEN\HYDROCODONE BITARTRATE
     Indication: PAIN
     Dosage: 2 TABLET, Q6H
     Route: 048
     Dates: start: 1979
  6. PERCOCET                           /00446701/ [Suspect]
     Active Substance: ACETAMINOPHEN\OXYCODONE HYDROCHLORIDE\OXYCODONE TEREPHTHALATE
     Indication: PAIN
     Dosage: 5/325 MG, Q6H
     Route: 048
     Dates: start: 1979
  7. TYLENOL WITH CODEINE [Suspect]
     Active Substance: ACETAMINOPHEN\CODEINE PHOSPHATE
     Indication: PAIN
     Dosage: 2 TABLET, Q6H
     Route: 048
  8. OXYCONTIN [Suspect]
     Active Substance: OXYCODONE HYDROCHLORIDE
     Indication: PAIN
     Dosage: 80 MG, 3 TABLETS  Q12H
     Route: 048
  9. NORCO [Suspect]
     Active Substance: ACETAMINOPHEN\HYDROCODONE BITARTRATE
     Indication: PAIN
     Dosage: 2 TABLET, Q6H
     Route: 048
     Dates: start: 1985, end: 1995
  10. METHADONE [Suspect]
     Active Substance: METHADONE HYDROCHLORIDE
     Indication: PRODUCT USED FOR UNKNOWN INDICATION
     Dosage: 10 MG, Q6H
     Route: 048
  11. DILAUDID [Suspect]
     Active Substance: HYDROMORPHONE HYDROCHLORIDE
     Indication: PAIN
     Dosage: 8 MG, 2 TABLETS Q8H
     Route: 048

REACTIONS (11)
  - Swelling [Unknown]
  - Drug withdrawal syndrome [Unknown]
  - Neck surgery [Unknown]
  - Drug dependence [Unknown]
  - Infection [Unknown]
  - Spinal operation [Unknown]
  - Drug dependence [Not Recovered/Not Resolved]
  - Blood pressure increased [Unknown]
  - Gait disturbance [Unknown]
  - Spinal fusion surgery [Unknown]
  - Cardiac operation [Unknown]

NARRATIVE: CASE EVENT DATE: 1979
